FAERS Safety Report 8812738 (Version 1)
Quarter: 2012Q4

REPORT INFORMATION
  Report Type: 
  Country: US (occurrence: US)
  Receive Date: 20120927
  Receipt Date: 20120927
  Transmission Date: 20130627
  Serious: Yes (Death)
  Sender: FDA-Public Use
  Company Number: US-ROCHE-1096183

PATIENT
  Sex: Male

DRUGS (2)
  1. AVASTIN [Suspect]
     Indication: NEOPLASM MALIGNANT
     Route: 042
     Dates: start: 20100712, end: 20100823
  2. XELODA [Suspect]
     Indication: NEOPLASM MALIGNANT
     Route: 042
     Dates: start: 20100712, end: 20100823

REACTIONS (2)
  - Respiratory failure [Fatal]
  - Pericardial effusion malignant [Fatal]
